FAERS Safety Report 7606684-9 (Version None)
Quarter: 2011Q3

REPORT INFORMATION
  Report Type: 
  Country: None (occurrence: None)
  Receive Date: 20110713
  Receipt Date: 20110705
  Transmission Date: 20111222
  Serious: Yes (Hospitalization)
  Sender: FDA-Public Use
  Company Number: US-ROCHE-781125

PATIENT
  Sex: Female
  Weight: 53.5 kg

DRUGS (13)
  1. SENNOSIDE [Concomitant]
  2. FIORICET [Concomitant]
  3. NISTATIN [Concomitant]
  4. COMPAZINE [Concomitant]
  5. TRIAMCINOLONE [Concomitant]
  6. ZOLPIDEM TARTRATE [Concomitant]
  7. BEVACIZUMAB [Suspect]
     Dosage: FREQUENCY FOUR TIMES EVERY THREE WEEKS, LAST DOSE PRIOR TO SAE ON 11 MAY 2011
     Route: 042
     Dates: start: 20110330, end: 20110613
  8. CLOBETASOL PROPIONATE [Concomitant]
  9. POLYETHYLENE GLYCOL [Concomitant]
  10. XANAX [Concomitant]
  11. COLACE [Concomitant]
  12. MAXALT [Concomitant]
  13. IPILIMUMAB [Suspect]
     Dosage: LAST DOSE PRIOR TO SAE ON 11 MAY 2011
     Route: 042
     Dates: start: 20110330, end: 20110613

REACTIONS (3)
  - ASPARTATE AMINOTRANSFERASE [None]
  - ALANINE AMINOTRANSFERASE [None]
  - TRANSAMINASES INCREASED [None]
